FAERS Safety Report 18053638 (Version 1)
Quarter: 2020Q3

REPORT INFORMATION
  Report Type: Spontaneous
  Country: US (occurrence: US)
  Receive Date: 20200721
  Receipt Date: 20200721
  Transmission Date: 20201103
  Serious: No
  Sender: FDA-Public Use
  Company Number: None

PATIENT
  Sex: Female

DRUGS (1)
  1. MEROPENEM 1 GM FRESENIUS KABI USA [Suspect]
     Active Substance: MEROPENEM
     Indication: SEPSIS
     Dosage: ?          OTHER ROUTE:IV?
     Route: 042
     Dates: start: 20200618, end: 202007

REACTIONS (1)
  - Rash [None]
